FAERS Safety Report 6903273-6 (Version None)
Quarter: 2010Q3

REPORT INFORMATION
  Report Type: 
  Country: None (occurrence: None)
  Receive Date: 20100803
  Receipt Date: 20080718
  Transmission Date: 20110219
  Serious: No
  Sender: FDA-Public Use
  Company Number: US-PFIZER INC-2008049190

PATIENT
  Sex: Female
  Weight: 90.9 kg

DRUGS (10)
  1. LYRICA [Suspect]
     Indication: PAIN
     Route: 048
     Dates: start: 20060101
  2. LYRICA [Suspect]
     Indication: MUSCLE SPASMS
  3. PLAVIX [Concomitant]
  4. DITROPAN [Concomitant]
  5. FOLIC ACID [Concomitant]
  6. ZOLOFT [Concomitant]
  7. NEXIUM [Concomitant]
  8. DIGOXIN [Concomitant]
  9. METOPROLOL [Concomitant]
  10. NEUROLAX [Concomitant]

REACTIONS (2)
  - PYREXIA [None]
  - URINARY TRACT INFECTION [None]
